FAERS Safety Report 25151810 (Version 1)
Quarter: 2025Q2

REPORT INFORMATION
  Report Type: Spontaneous
  Country: US (occurrence: US)
  Receive Date: 20250402
  Receipt Date: 20250402
  Transmission Date: 20250717
  Serious: No
  Sender: SCIEGEN
  Company Number: US-SCIEGENP-2025SCSPO00045

PATIENT

DRUGS (1)
  1. BUPROPION HYDROCHLORIDE [Suspect]
     Active Substance: BUPROPION HYDROCHLORIDE
     Indication: Product used for unknown indication
     Route: 065

REACTIONS (9)
  - Fatigue [Recovering/Resolving]
  - Apathy [Recovering/Resolving]
  - Brain fog [Recovering/Resolving]
  - Feeling of despair [Recovering/Resolving]
  - Anhedonia [Recovering/Resolving]
  - Somnolence [Recovering/Resolving]
  - Therapeutic response decreased [Unknown]
  - Product coating issue [Unknown]
  - Product substitution issue [Unknown]
